FAERS Safety Report 9356634 (Version 3)
Quarter: 2013Q4

REPORT INFORMATION
  Report Type: Spontaneous
  Country: GR (occurrence: GR)
  Receive Date: 20130619
  Receipt Date: 20131205
  Transmission Date: 20140711
  Serious: Yes (Hospitalization)
  Sender: FDA-Public Use
  Company Number: GR-B.I. PHARMACEUTICALS,INC./RIDGEFIELD-2013-BI-17194GB

PATIENT
  Age: 82 Year
  Sex: Male

DRUGS (2)
  1. PRADAXA [Suspect]
     Indication: ATRIAL FIBRILLATION
     Dosage: 220 MG
     Route: 048
     Dates: start: 201210, end: 2013
  2. UNSPECIFIED MEDICINAL PRODUCT FOR ARTERIAL HYPERTENSION [Concomitant]
     Indication: HYPERTENSION

REACTIONS (1)
  - Cerebrovascular accident [Recovered/Resolved with Sequelae]
